FAERS Safety Report 9732464 (Version 2)
Quarter: 2013Q4

REPORT INFORMATION
  Report Type: Spontaneous
  Country: US (occurrence: US)
  Receive Date: 20131205
  Receipt Date: 20131216
  Transmission Date: 20140711
  Serious: No
  Sender: FDA-Public Use
  Company Number: US-PFIZER INC-2013347485

PATIENT
  Age: 73 Year
  Sex: Female
  Weight: 81.63 kg

DRUGS (2)
  1. CHANTIX [Suspect]
     Indication: SMOKING CESSATION THERAPY
     Dosage: UNK
  2. CHANTIX [Suspect]
     Dosage: 1 MG, 2X/DAY

REACTIONS (3)
  - Nightmare [Unknown]
  - Dysgeusia [Unknown]
  - Parosmia [Unknown]
